FAERS Safety Report 4431304-4 (Version None)
Quarter: 2004Q3

REPORT INFORMATION
  Report Type: 
  Country: None (occurrence: None)
  Receive Date: 20040817
  Receipt Date: 20040804
  Transmission Date: 20050211
  Serious: Yes (Life-Threatening, Hospitalization)
  Sender: FDA-Public Use
  Company Number: 2004225504CA

PATIENT
  Age: 69 Year
  Sex: Male
  Weight: 58.1 kg

DRUGS (3)
  1. CAMPTOSAR [Suspect]
     Indication: COLON CANCER
     Dosage: 300 MG, CYCLIC,
     Dates: start: 20040713, end: 20040713
  2. OXALIPLATIN [Suspect]
     Indication: COLON CANCER
     Dosage: 140 MG, CYCLIC,
     Dates: start: 20040713, end: 20040713
  3. XELODA [Suspect]
     Indication: COLON CANCER
     Dosage: 1300 MG, CYCLIC
     Dates: start: 20040714, end: 20040714

REACTIONS (5)
  - FEBRILE NEUTROPENIA [None]
  - HYPOTENSION [None]
  - INTESTINAL PERFORATION [None]
  - SEPSIS [None]
  - WHITE BLOOD CELL COUNT DECREASED [None]
